FAERS Safety Report 21028505 (Version 2)
Quarter: 2022Q3

REPORT INFORMATION
  Report Type: Report from Study
  Country: IT (occurrence: IT)
  Receive Date: 20220630
  Receipt Date: 20220715
  Transmission Date: 20221027
  Serious: Yes (Hospitalization)
  Sender: FDA-Public Use
  Company Number: IT-TEVA-2022-IT-2049617

PATIENT

DRUGS (8)
  1. PREDNISONE [Suspect]
     Active Substance: PREDNISONE
     Indication: Anti-neutrophil cytoplasmic antibody positive vasculitis
     Dosage: 1 MG/KG DAILY; PREDNISONE 1MG/KG/DAY (MAX. 60MG/DAY) TO BE TAPERED TO 12.5 MG AT THE END OF MONTH 3
     Route: 048
  2. PREDNISONE [Suspect]
     Active Substance: PREDNISONE
     Indication: Renal vasculitis
  3. AZATHIOPRINE [Suspect]
     Active Substance: AZATHIOPRINE
     Indication: Anti-neutrophil cytoplasmic antibody positive vasculitis
     Dosage: 2 MG/KG DAILY; 2 MG/KG/ DAY FOR AT LEAST 2 YEARS AND 1 TO 1.5 MG/KG/DAY FOR ADDITIONALLY 1 TO 2 YEAR
     Route: 048
  4. AZATHIOPRINE [Suspect]
     Active Substance: AZATHIOPRINE
     Indication: Renal vasculitis
  5. CYCLOPHOSPHAMIDE [Suspect]
     Active Substance: CYCLOPHOSPHAMIDE
     Indication: Anti-neutrophil cytoplasmic antibody positive vasculitis
     Dosage: 2 MG/KG DAILY;
     Route: 048
  6. CYCLOPHOSPHAMIDE [Suspect]
     Active Substance: CYCLOPHOSPHAMIDE
     Indication: Renal vasculitis
  7. METHYLPREDNISOLONE [Suspect]
     Active Substance: METHYLPREDNISOLONE
     Indication: Anti-neutrophil cytoplasmic antibody positive vasculitis
     Dosage: METHYLPREDNISOLONE OF 15MG/KG (MAX 1000 MG) ON THREE CONSECUTIVE DAYS
     Route: 041
  8. METHYLPREDNISOLONE [Suspect]
     Active Substance: METHYLPREDNISOLONE
     Indication: Renal vasculitis

REACTIONS (1)
  - Bronchopulmonary aspergillosis [Unknown]
